FAERS Safety Report 21289480 (Version 1)
Quarter: 2022Q3

REPORT INFORMATION
  Report Type: Report from Study
  Country: US (occurrence: None)
  Receive Date: 20220902
  Receipt Date: 20220902
  Transmission Date: 20221027
  Serious: Yes (Other)
  Sender: FDA-Public Use
  Company Number: US-Eisai Medical Research-EC-2022-122273

PATIENT
  Age: 80 Year
  Sex: Female

DRUGS (5)
  1. LENVIMA [Suspect]
     Active Substance: LENVATINIB
     Indication: Endometrial cancer
     Route: 048
     Dates: start: 20210814, end: 2021
  2. LENVIMA [Suspect]
     Active Substance: LENVATINIB
     Dosage: HOLD HER DOSE FOR 09/23/2021
     Route: 048
     Dates: start: 20210913, end: 2021
  3. LENVIMA [Suspect]
     Active Substance: LENVATINIB
     Route: 048
     Dates: start: 2021, end: 2021
  4. LENVIMA [Suspect]
     Active Substance: LENVATINIB
     Route: 048
     Dates: start: 2021, end: 20220824
  5. KEYTRUDA [Concomitant]
     Active Substance: PEMBROLIZUMAB
     Indication: Endometrial cancer
     Dosage: DOSE AND FREQUENCY UNKNOWN
     Route: 041

REACTIONS (1)
  - Gastric perforation [Unknown]

NARRATIVE: CASE EVENT DATE: 20220101
